FAERS Safety Report 7978458-0 (Version None)
Quarter: 2011Q4

REPORT INFORMATION
  Report Type: 
  Country: None (occurrence: None)
  Receive Date: 20111214
  Receipt Date: 20111206
  Transmission Date: 20120403
  Serious: Yes (Other)
  Sender: FDA-Public Use
  Company Number: US-BAYER-2011-047560

PATIENT
  Age: 54 Year
  Sex: Female
  Weight: 68.02 kg

DRUGS (1)
  1. MIRENA [Suspect]
     Indication: MENORRHAGIA
     Dosage: 20 ?G/D, CONT
     Route: 015
     Dates: start: 20080422, end: 20110531

REACTIONS (5)
  - HAEMATOCRIT DECREASED [None]
  - DEVICE EXPULSION [None]
  - MENORRHAGIA [None]
  - HAEMOGLOBIN DECREASED [None]
  - HYSTERECTOMY [None]
